FAERS Safety Report 23672309 (Version 2)
Quarter: 2024Q2

REPORT INFORMATION
  Report Type: Spontaneous
  Country: IT (occurrence: IT)
  Receive Date: 20240326
  Receipt Date: 20240419
  Transmission Date: 20240716
  Serious: Yes (Hospitalization)
  Sender: FDA-Public Use
  Company Number: None

PATIENT
  Age: 84 Year
  Sex: Male
  Weight: 90 kg

DRUGS (6)
  1. PRADAXA [Suspect]
     Active Substance: DABIGATRAN ETEXILATE MESYLATE
     Indication: Thrombosis prophylaxis
     Dosage: THE PRADAXA THERAPY START DATE IS NOT KNOWN
     Route: 048
  2. PANTOPRAZOLE SODIUM [Concomitant]
     Active Substance: PANTOPRAZOLE SODIUM
     Indication: Gastrooesophageal reflux disease
     Dosage: THE PANTOPRAZOLE THERAPY START DATE IS NOT KNOWN.?THE SPECIFIC POSOLOGY AND THE DOSAGE OF PANTOPRAZO
     Route: 048
  3. SIMVASTATIN [Concomitant]
     Active Substance: SIMVASTATIN
     Indication: Thrombosis prophylaxis
     Dosage: THE SIMVASTATIN THERAPY START DATE IS NOT KNOWN.?POSOLOGY: SIMVASTATIN 20MG PER DAY.
     Route: 048
  4. LASIX [Concomitant]
     Active Substance: FUROSEMIDE
     Indication: Cardiomyopathy
     Dosage: THE LASIX THERAPY START DATE IS NOT KNOWN.?POSOLOGY: LASIX 25MG TWICE PER DAY.
     Route: 048
  5. METFORMIN HYDROCHLORIDE [Concomitant]
     Active Substance: METFORMIN HYDROCHLORIDE
     Indication: Type 2 diabetes mellitus
     Dosage: THE METFORMIN THERAPY START DATE IS NOT KNOWN.?POSOLOGY: METFORMIN 500MG TWICE PER DAY.
     Route: 048
  6. BISOPROLOL FUMARATE [Concomitant]
     Active Substance: BISOPROLOL FUMARATE
     Indication: Hypertension
     Dosage: THE BISOPROLOL THERAPY START DATE IS NOT KNOWN.?POSOLOGY: BISOPROLOL 1.25MG PER DAY
     Route: 048

REACTIONS (4)
  - Haemorrhoids [Recovering/Resolving]
  - Blood loss anaemia [Recovering/Resolving]
  - Asthenia [Recovering/Resolving]
  - Dyspnoea [Recovering/Resolving]

NARRATIVE: CASE EVENT DATE: 20230624
